FAERS Safety Report 19028395 (Version 1)
Quarter: 2021Q1

REPORT INFORMATION
  Report Type: Report from Study
  Country: None (occurrence: US)
  Receive Date: 20210319
  Receipt Date: 20210319
  Transmission Date: 20210420
  Serious: Yes (Other)
  Sender: FDA-Public Use
  Company Number: US-ABBVIE-21K-163-3819059-00

PATIENT
  Sex: Female

DRUGS (1)
  1. VENCLEXTA [Suspect]
     Active Substance: VENETOCLAX
     Indication: ACUTE MYELOID LEUKAEMIA
     Dosage: TWO TABLETS A DAY TO MAKE 70MG
     Route: 048
     Dates: start: 20201207

REACTIONS (3)
  - Transfusion [Unknown]
  - SARS-CoV-2 test positive [Recovered/Resolved]
  - Immune system disorder [Unknown]
